FAERS Safety Report 19593384 (Version 1)
Quarter: 2021Q3

REPORT INFORMATION
  Report Type: Spontaneous
  Country: US (occurrence: US)
  Receive Date: 20210722
  Receipt Date: 20210722
  Transmission Date: 20211014
  Serious: No
  Sender: FDA-Public Use
  Company Number: US-BAYER-2021-166889

PATIENT
  Age: 68 Year
  Sex: Female

DRUGS (2)
  1. FEXOFENADINE;PSEUDOEPHEDRINE [Concomitant]
     Dosage: 12 HR
  2. CLARITIN?D NOS [Suspect]
     Active Substance: LORATADINE\PSEUDOEPHEDRINE SULFATE

REACTIONS (1)
  - Somnolence [Unknown]
